FAERS Safety Report 5921126-7 (Version None)
Quarter: 2008Q4

REPORT INFORMATION
  Report Type: 
  Country: None (occurrence: None)
  Receive Date: 20081016
  Receipt Date: 20081003
  Transmission Date: 20090506
  Serious: No
  Sender: FDA-Public Use
  Company Number: IT-ELI_LILLY_AND_COMPANY-IT200810001814

PATIENT
  Sex: Male

DRUGS (3)
  1. ZYPREXA [Suspect]
     Indication: ALCOHOLIC PSYCHOSIS
     Dosage: 5 MG, DAILY (1/D)
     Dates: start: 20000818
  2. ZYPREXA [Suspect]
     Dosage: 10 MG, DAILY (1/D)
     Dates: end: 20080601
  3. ZYPREXA [Suspect]
     Dosage: UNK, UNKNOWN

REACTIONS (1)
  - POLYCYTHAEMIA [None]
